FAERS Safety Report 8499971-6 (Version None)
Quarter: 2012Q3

REPORT INFORMATION
  Report Type: 
  Country: None (occurrence: None)
  Receive Date: 20120710
  Receipt Date: 20120627
  Transmission Date: 20120928
  Serious: Yes (Hospitalization, Other)
  Sender: FDA-Public Use
  Company Number: US-ELI_LILLY_AND_COMPANY-US201207000903

PATIENT
  Age: 78 Year
  Sex: Female

DRUGS (7)
  1. CYMBALTA [Suspect]
     Dosage: 60 MG, QD
     Route: 065
  2. LEVOTHYROXINE SODIUM [Concomitant]
  3. POTASSIUM CHLORIDE [Concomitant]
  4. ZOLPIDEM [Concomitant]
  5. VALSARTAN [Concomitant]
     Indication: PAIN
  6. CYMBALTA [Suspect]
     Indication: DEPRESSION
     Dosage: 30 MG, QD
     Route: 065
     Dates: start: 20110101
  7. LISINOPRIL [Concomitant]

REACTIONS (14)
  - HEAD INJURY [None]
  - GAIT DISTURBANCE [None]
  - DIZZINESS [None]
  - MACULAR DEGENERATION [None]
  - FIBULA FRACTURE [None]
  - CEREBROVASCULAR ACCIDENT [None]
  - ACCIDENT [None]
  - HEARING IMPAIRED [None]
  - LIMB INJURY [None]
  - SPEECH DISORDER [None]
  - HYPOTENSION [None]
  - PAIN [None]
  - NAUSEA [None]
  - LABYRINTHITIS [None]
